FAERS Safety Report 23154992 (Version 1)
Quarter: 2023Q4

REPORT INFORMATION
  Report Type: Spontaneous
  Country: ES (occurrence: None)
  Receive Date: 20231107
  Receipt Date: 20231107
  Transmission Date: 20240110
  Serious: Yes (Life-Threatening, Hospitalization)
  Sender: FDA-Public Use
  Company Number: 2023A253151

PATIENT
  Age: 84 Year
  Sex: Female
  Weight: 55 kg

DRUGS (12)
  1. OMEPRAZOLE [Interacting]
     Active Substance: OMEPRAZOLE
     Indication: Dyspepsia
     Dosage: 0-0-1-0
     Route: 048
     Dates: start: 20230731, end: 20230803
  2. TRAZODONE HYDROCHLORIDE [Interacting]
     Active Substance: TRAZODONE HYDROCHLORIDE
     Indication: Depression
     Dosage: 30 TABLETS, 0-0-0-1
     Route: 048
     Dates: start: 20220620, end: 20230823
  3. INDAPAMIDE [Interacting]
     Active Substance: INDAPAMIDE
     Indication: Hypertension
     Dosage: 1-0-0-0
     Route: 048
     Dates: start: 20220428, end: 20230803
  4. METFORMIN [Concomitant]
     Active Substance: METFORMIN HYDROCHLORIDE
     Dosage: 0-0-0.5-0
  5. AMLODIPINE BESYLATE\OLMESARTAN MEDOXOMIL [Concomitant]
     Active Substance: AMLODIPINE BESYLATE\OLMESARTAN MEDOXOMIL
     Dosage: 40 MG /5MG 0-0-1
     Dates: start: 20220428
  6. ATORVASTATIN [Concomitant]
     Active Substance: ATORVASTATIN
  7. CLONAZEPAM [Concomitant]
     Active Substance: CLONAZEPAM
     Indication: Constipation
     Dosage: OCCASIONALLY
  8. MOVICOL [Concomitant]
     Active Substance: POLYETHYLENE GLYCOL 3350\POTASSIUM CHLORIDE\SODIUM BICARBONATE\SODIUM CHLORIDE
     Indication: Constipation
     Dosage: OCCASIONALLY
  9. SODIUM PICOSULFATE [Concomitant]
     Active Substance: SODIUM PICOSULFATE
     Indication: Constipation
     Dosage: OCCASIONALLY
  10. DESLORATADINE [Concomitant]
     Active Substance: DESLORATADINE
  11. ACETAMINOPHEN [Concomitant]
     Active Substance: ACETAMINOPHEN
  12. NOLOTIL [Concomitant]

REACTIONS (5)
  - Hypokalaemia [Recovered/Resolved]
  - Bradyphrenia [Recovered/Resolved]
  - Inappropriate antidiuretic hormone secretion [Recovered/Resolved]
  - Hyponatraemia [Recovered/Resolved]
  - Urinary tract infection [Unknown]

NARRATIVE: CASE EVENT DATE: 20230803
